FAERS Safety Report 14949232 (Version 1)
Quarter: 2018Q2

REPORT INFORMATION
  Report Type: Spontaneous
  Country: DE (occurrence: DE)
  Receive Date: 20180529
  Receipt Date: 20180529
  Transmission Date: 20180711
  Serious: Yes (Hospitalization)
  Sender: FDA-Public Use
  Company Number: DE-ASTRAZENECA-2018SE66175

PATIENT
  Age: 28 Year
  Sex: Female

DRUGS (3)
  1. TAVOR (LORAZEPAM) [Concomitant]
     Active Substance: LORAZEPAM
     Dosage: 1 MG, AS REQUIRED
  2. SERTRALINE [Concomitant]
     Active Substance: SERTRALINE HYDROCHLORIDE
     Dosage: NK MG, NEW FROM 08.12.2016
     Dates: start: 20161208
  3. QUETIAPINE. [Suspect]
     Active Substance: QUETIAPINE
     Dosage: 125 MG, NK
     Route: 048

REACTIONS (1)
  - Tension [Unknown]

NARRATIVE: CASE EVENT DATE: 20161208
